FAERS Safety Report 8185977-3 (Version None)
Quarter: 2012Q1

REPORT INFORMATION
  Report Type: 
  Country: None (occurrence: None)
  Receive Date: 20120305
  Receipt Date: 20120221
  Transmission Date: 20120608
  Serious: Yes (Death)
  Sender: FDA-Public Use
  Company Number: DE-MYLANLABS-2012S1004143

PATIENT
  Age: 13 Year
  Sex: Male

DRUGS (7)
  1. MERCAPTOPURINE [Suspect]
     Indication: ACUTE LYMPHOCYTIC LEUKAEMIA
     Dosage: 50% DOSAGE MODIFICATION
     Route: 065
  2. VINCRISTINE [Suspect]
     Indication: ACUTE LYMPHOCYTIC LEUKAEMIA
     Dosage: 66-75% DOSAGE MODIFICATION
     Route: 065
  3. CYTARABINE [Suspect]
     Indication: ACUTE LYMPHOCYTIC LEUKAEMIA
     Dosage: 50% DOSAGE MODIFICATION
     Route: 065
  4. ASPARAGINASE [Suspect]
     Indication: ACUTE LYMPHOCYTIC LEUKAEMIA
     Dosage: 66-75% DOSAGE MODIFICATION
     Route: 065
  5. CYCLOPHOSPHAMIDE [Suspect]
     Dosage: 66% DOSAGE MODIFICATION
     Route: 065
  6. CYCLOPHOSPHAMIDE [Suspect]
     Indication: ACUTE LYMPHOCYTIC LEUKAEMIA
     Dosage: 50% DOSAGE MODIFICATION
     Route: 065
  7. METHOTREXATE [Suspect]
     Indication: ACUTE LYMPHOCYTIC LEUKAEMIA
     Dosage: 20-66% DOSAGE MODIFICATION
     Route: 065

REACTIONS (1)
  - SEPSIS [None]
